FAERS Safety Report 10169695 (Version 1)
Quarter: 2014Q2

REPORT INFORMATION
  Report Type: Spontaneous
  Country: US (occurrence: US)
  Receive Date: 20140513
  Receipt Date: 20140513
  Transmission Date: 20141212
  Serious: Yes (Hospitalization)
  Sender: FDA-Public Use
  Company Number: US-PFIZER INC-2014127137

PATIENT
  Sex: Female

DRUGS (2)
  1. VIBRAMYCIN [Suspect]
     Indication: OSTEOMYELITIS
     Dosage: UNK
     Route: 048
  2. VIBRAMYCIN [Suspect]
     Indication: OSTEONECROSIS

REACTIONS (1)
  - Haemoglobin decreased [Unknown]
